FAERS Safety Report 13876913 (Version 3)
Quarter: 2017Q3

REPORT INFORMATION
  Report Type: Spontaneous
  Country: PL (occurrence: PL)
  Receive Date: 20170817
  Receipt Date: 20170915
  Transmission Date: 20171127
  Serious: No
  Sender: FDA-Public Use
  Company Number: PL-ROCHE-1977846

PATIENT
  Sex: Female
  Weight: 61 kg

DRUGS (3)
  1. DOCETAXEL. [Concomitant]
     Active Substance: DOCETAXEL
     Indication: BREAST CANCER RECURRENT
     Dosage: 120/100/70 MG
     Route: 042
     Dates: start: 20170328, end: 20170718
  2. PERJETA [Suspect]
     Active Substance: PERTUZUMAB
     Indication: BREAST CANCER RECURRENT
     Dosage: 840/420 MG?DOSES ALSO RECEIVED ON 18/APR/2017, 19/MAY/2017 AND 13/JUN/2017
     Route: 042
     Dates: start: 20170328, end: 20170718
  3. HERCEPTIN [Concomitant]
     Active Substance: TRASTUZUMAB
     Indication: BREAST CANCER RECURRENT
     Dosage: 488/366 MG?DOSES ALSO RECEIVED ON 18/APR/2017, 19/MAY/2017 AND 13/JUN/2017
     Route: 042
     Dates: start: 20170328, end: 20170718

REACTIONS (2)
  - Drug ineffective [Unknown]
  - No adverse event [Unknown]
